FAERS Safety Report 12550518 (Version 1)
Quarter: 2016Q3

REPORT INFORMATION
  Report Type: Report from Study
  Country: BR (occurrence: BR)
  Receive Date: 20160712
  Receipt Date: 20160712
  Transmission Date: 20161109
  Serious: Yes (Hospitalization, Other)
  Sender: FDA-Public Use
  Company Number: BR-ABBVIE-16K-020-1672029-00

PATIENT
  Sex: Female
  Weight: 47.5 kg

DRUGS (2)
  1. HUMIRA [Suspect]
     Active Substance: ADALIMUMAB
     Indication: RHEUMATOID ARTHRITIS
     Route: 058
     Dates: start: 20110101
  2. HUMIRA [Suspect]
     Active Substance: ADALIMUMAB
     Route: 058

REACTIONS (12)
  - Nephrolithiasis [Recovered/Resolved]
  - Asthenia [Recovered/Resolved]
  - Overweight [Recovered/Resolved]
  - Anaemia [Recovering/Resolving]
  - Calcium deficiency [Unknown]
  - Muscle spasms [Unknown]
  - Hypophagia [Not Recovered/Not Resolved]
  - Gastrointestinal infection [Recovered/Resolved]
  - Postoperative wound infection [Recovered/Resolved]
  - Hypovitaminosis [Unknown]
  - Wound dehiscence [Unknown]
  - Crohn^s disease [Recovered/Resolved]

NARRATIVE: CASE EVENT DATE: 2011
